FAERS Safety Report 4944399-6 (Version None)
Quarter: 2006Q1

REPORT INFORMATION
  Report Type: 
  Country: None (occurrence: None)
  Receive Date: 20060315
  Receipt Date: 20051115
  Transmission Date: 20060701
  Serious: Yes (Hospitalization)
  Sender: FDA-Public Use
  Company Number: US-MERCK-0511USA03575

PATIENT
  Age: 66 Year
  Sex: Male
  Weight: 101 kg

DRUGS (9)
  1. VIOXX [Suspect]
     Indication: BACK PAIN
     Route: 048
     Dates: start: 19990101, end: 20040101
  2. TYLENOL (CAPLET) [Concomitant]
     Route: 065
  3. LEVSINEX TIMECAPS [Concomitant]
     Route: 065
     Dates: start: 20000501
  4. CARDURA [Concomitant]
     Indication: POLLAKIURIA
     Route: 065
     Dates: start: 19991007
  5. CARDURA [Concomitant]
     Indication: BENIGN PROSTATIC HYPERPLASIA
     Route: 065
     Dates: start: 19991007
  6. HYDROCODONE BITARTRATE [Concomitant]
     Route: 065
  7. HYDROCHLOROTHIAZIDE [Concomitant]
     Route: 065
  8. LOTREL [Concomitant]
     Route: 065
  9. VIAGRA [Concomitant]
     Route: 065
     Dates: start: 19991007

REACTIONS (18)
  - ABDOMINAL PAIN [None]
  - ANAEMIA [None]
  - ASTHENIA [None]
  - CORONARY ARTERY SURGERY [None]
  - COUGH [None]
  - DIZZINESS [None]
  - GASTROOESOPHAGEAL REFLUX DISEASE [None]
  - HAEMATOMA [None]
  - HERPES ZOSTER [None]
  - HYPERLIPIDAEMIA [None]
  - HYPERTENSION [None]
  - HYPOAESTHESIA [None]
  - MUSCULOSKELETAL CHEST PAIN [None]
  - MYOCARDIAL INFARCTION [None]
  - NEPHROLITHIASIS [None]
  - OSTEOMYELITIS [None]
  - STAPHYLOCOCCAL INFECTION [None]
  - TACHYCARDIA [None]
